FAERS Safety Report 23344285 (Version 4)
Quarter: 2024Q2

REPORT INFORMATION
  Report Type: Spontaneous
  Country: DE (occurrence: DE)
  Receive Date: 20231228
  Receipt Date: 20240610
  Transmission Date: 20240716
  Serious: Yes (Hospitalization, Other)
  Sender: FDA-Public Use
  Company Number: DE-MLMSERVICE-20231215-4729668-1

PATIENT
  Age: 56 Year
  Sex: Male

DRUGS (1)
  1. SILDENAFIL [Suspect]
     Active Substance: SILDENAFIL
     Indication: Product used for unknown indication
     Dosage: 1 DOSAGE FORM
     Route: 065

REACTIONS (15)
  - Vertigo [Recovered/Resolved]
  - Head injury [Recovered/Resolved]
  - Syncope [Recovered/Resolved]
  - Face injury [Recovered/Resolved]
  - Headache [Recovered/Resolved]
  - Lip injury [Recovered/Resolved]
  - Circulatory collapse [Recovered/Resolved]
  - Product contamination [Recovered/Resolved]
  - Methaemoglobinaemia [Recovered/Resolved]
  - Fall [Recovered/Resolved]
  - Orthostatic intolerance [Recovered/Resolved]
  - Toxicity to various agents [Recovered/Resolved]
  - Metabolic acidosis [Recovered/Resolved]
  - Hypoxia [Unknown]
  - Intentional product misuse [Unknown]
